FAERS Safety Report 9921875 (Version 2)
Quarter: 2014Q1

REPORT INFORMATION
  Report Type: Spontaneous
  Country: DE (occurrence: DE)
  Receive Date: 20140225
  Receipt Date: 20140225
  Transmission Date: 20141002
  Serious: Yes (Life-Threatening, Hospitalization)
  Sender: FDA-Public Use
  Company Number: DE-BRISTOL-MYERS SQUIBB COMPANY-19577360

PATIENT
  Age: 40 Year
  Sex: Female
  Weight: 55 kg

DRUGS (4)
  1. FORXIGA [Suspect]
     Indication: TYPE 2 DIABETES MELLITUS
  2. INSULIN [Concomitant]
  3. LEVEMIR [Concomitant]
     Dosage: 1 DF: 5 IU IN MORNING AND 10IU IN NIGHT
  4. NOVORAPID [Concomitant]
     Dosage: 1 DF: 4 IU IN MORNING AND 6IU IN NOON AND 5IU IN EVE

REACTIONS (6)
  - Ketoacidosis [Recovering/Resolving]
  - Sinusitis [Not Recovered/Not Resolved]
  - Vaginal infection [Unknown]
  - Renal failure acute [Unknown]
  - Off label use [Unknown]
  - Dehydration [Unknown]
